FAERS Safety Report 6084324-0 (Version None)
Quarter: 2009Q1

REPORT INFORMATION
  Report Type: 
  Country: None (occurrence: None)
  Receive Date: 20090217
  Receipt Date: 20090212
  Transmission Date: 20090719
  Serious: Yes (Hospitalization)
  Sender: FDA-Public Use
  Company Number: 036553

PATIENT
  Sex: Female

DRUGS (5)
  1. IRINOTECAN INJECTION(IRINOTECAN) INJECTION, 100MG [Suspect]
     Indication: GASTROOESOPHAGEAL CANCER
     Dosage: 180 MG*M2, QD, EVERY TWO WEEKS, INTRAVENOUS
     Route: 042
     Dates: start: 20050921
  2. FLUOROURACIL [Suspect]
     Indication: GASTROOESOPHAGEAL CANCER
     Dosage: 600MG/M2 INFUSION ON DAY 1+2 Q2WK, INTRAVENOUS, 400MG/M2 INFUSION ON DAY 1+2 Q2WK, INTRAVENOUS
     Route: 042
     Dates: start: 20050921
  3. FLUOROURACIL [Suspect]
     Indication: GASTROOESOPHAGEAL CANCER
     Dosage: 600MG/M2 INFUSION ON DAY 1+2 Q2WK, INTRAVENOUS, 400MG/M2 INFUSION ON DAY 1+2 Q2WK, INTRAVENOUS
     Route: 042
     Dates: start: 20050921
  4. LEUCOVORIN CALCIUM [Suspect]
     Indication: GASTROOESOPHAGEAL CANCER
     Dosage: 100 MG/M*2 ON DAY 1+2 Q2WK, INTRAVENOUS
     Route: 042
     Dates: start: 20050921
  5. WARFARIN SODIUM [Concomitant]

REACTIONS (2)
  - INCORRECT DOSE ADMINISTERED [None]
  - PROTHROMBIN TIME PROLONGED [None]
